FAERS Safety Report 7573347-8 (Version None)
Quarter: 2011Q2

REPORT INFORMATION
  Report Type: 
  Country: None (occurrence: None)
  Receive Date: 20110620
  Receipt Date: 20110606
  Transmission Date: 20111010
  Serious: Yes (Other)
  Sender: FDA-Public Use
  Company Number: JP-ACCORD-009496

PATIENT
  Age: 26 Year
  Sex: Female

DRUGS (8)
  1. ETOPOSIDE [Suspect]
     Indication: HISTIOCYTOSIS HAEMATOPHAGIC
  2. METHOTREXATE [Suspect]
     Indication: PROPHYLAXIS
  3. CYCLOPHOSPHAMIDE [Concomitant]
  4. FLUDARABINE PHOSPHATE [Concomitant]
  5. DOXORUBICIN HCL [Concomitant]
  6. VINCRISTINE [Concomitant]
  7. TACROLIMUS [Suspect]
     Indication: PROPHYLAXIS
  8. PREDNISOLONE [Concomitant]

REACTIONS (8)
  - STEM CELL TRANSPLANT [None]
  - BRONCHOPULMONARY ASPERGILLOSIS [None]
  - CARDIAC DISORDER [None]
  - DRUG HYPERSENSITIVITY [None]
  - BONE MARROW FAILURE [None]
  - CYTOMEGALOVIRUS INFECTION [None]
  - ACUTE GRAFT VERSUS HOST DISEASE IN SKIN [None]
  - OFF LABEL USE [None]
